FAERS Safety Report 16213870 (Version 1)
Quarter: 2019Q2

REPORT INFORMATION
  Report Type: Spontaneous
  Country: US (occurrence: US)
  Receive Date: 20190418
  Receipt Date: 20190418
  Transmission Date: 20190711
  Serious: Yes (Death, Other)
  Sender: FDA-Public Use
  Company Number: US-BAUSCH-BL-2019-011557

PATIENT
  Sex: Female

DRUGS (1)
  1. XIFAXAN [Suspect]
     Active Substance: RIFAXIMIN
     Indication: PRODUCT USED FOR UNKNOWN INDICATION
     Dosage: AS DIRECTED
     Route: 065

REACTIONS (6)
  - Skin injury [Unknown]
  - Fall [Unknown]
  - Dysstasia [Unknown]
  - Drug ineffective [Unknown]
  - Death [Fatal]
  - Staphylococcal infection [Unknown]

NARRATIVE: CASE EVENT DATE: 20180225
